FAERS Safety Report 5801727-7 (Version None)
Quarter: 2008Q3

REPORT INFORMATION
  Report Type: 
  Country: None (occurrence: None)
  Receive Date: 20080707
  Receipt Date: 20080703
  Transmission Date: 20090109
  Serious: Yes (Other)
  Sender: FDA-Public Use
  Company Number: B0527687A

PATIENT
  Age: 35 Year
  Sex: Female

DRUGS (7)
  1. ONDANSETRON [Suspect]
     Dosage: 12MG PER DAY
     Dates: start: 20080621, end: 20080623
  2. CYCLIZINE [Suspect]
     Dosage: 150MG PER DAY
     Dates: start: 20080621, end: 20080622
  3. IBUPROFEN [Suspect]
     Dosage: 1200MG PER DAY
     Dates: start: 20080622, end: 20080623
  4. ACETAMINOPHEN [Concomitant]
  5. HEPARIN [Concomitant]
  6. CIPROFLOXACIN [Concomitant]
  7. FENTANYL [Concomitant]

REACTIONS (5)
  - HYPOTENSION [None]
  - MUSCULAR WEAKNESS [None]
  - RASH ERYTHEMATOUS [None]
  - SENSATION OF HEAVINESS [None]
  - TACHYCARDIA [None]
